FAERS Safety Report 7171625-8 (Version None)
Quarter: 2010Q4

REPORT INFORMATION
  Report Type: 
  Country: None (occurrence: None)
  Receive Date: 20101217
  Receipt Date: 20101209
  Transmission Date: 20110411
  Serious: Yes (Other)
  Sender: FDA-Public Use
  Company Number: US-ABBOTT-10P-163-0690682-00

PATIENT
  Sex: Female
  Weight: 83.99 kg

DRUGS (11)
  1. HUMIRA [Suspect]
     Indication: RHEUMATOID ARTHRITIS
     Dates: start: 20040122, end: 20080201
  2. HUMIRA [Suspect]
     Dates: start: 20071001, end: 20100201
  3. HUMIRA [Suspect]
     Dates: start: 20100501
  4. SYNTHROID [Concomitant]
     Indication: HYPOTHYROIDISM
  5. ATENOLOL [Concomitant]
     Indication: HYPERTENSION
     Dates: start: 20020101
  6. HYDROCHLOROTHIAZIDE [Concomitant]
     Indication: HYPERTENSION
     Dates: start: 20030116
  7. ZETIA [Concomitant]
     Indication: BLOOD CHOLESTEROL INCREASED
     Dates: start: 20080801
  8. CELEBREX [Concomitant]
     Indication: RHEUMATOID ARTHRITIS
     Dates: start: 19990701
  9. EFFEXOR [Concomitant]
     Indication: DEPRESSION
  10. WELLBUTRIN [Concomitant]
     Indication: DEPRESSION
  11. DEXILANT [Concomitant]
     Indication: GASTROOESOPHAGEAL REFLUX DISEASE
     Dates: start: 20091201

REACTIONS (19)
  - ABDOMINAL PAIN [None]
  - ABDOMINAL PAIN UPPER [None]
  - ACQUIRED OESOPHAGEAL WEB [None]
  - ARTHRALGIA [None]
  - ARTHRITIS [None]
  - BLOOD CHOLESTEROL INCREASED [None]
  - CHOLELITHIASIS [None]
  - ERYTHEMA [None]
  - FUNGAL INFECTION [None]
  - GAIT DISTURBANCE [None]
  - GASTROOESOPHAGEAL REFLUX DISEASE [None]
  - INSOMNIA [None]
  - MALAISE [None]
  - MUSCLE TWITCHING [None]
  - NAUSEA [None]
  - PAIN [None]
  - SKIN IRRITATION [None]
  - SKIN ODOUR ABNORMAL [None]
  - UPPER RESPIRATORY TRACT INFECTION [None]
